FAERS Safety Report 23621114 (Version 1)
Quarter: 2024Q1

REPORT INFORMATION
  Report Type: Spontaneous
  Country: IT (occurrence: IT)
  Receive Date: 20240312
  Receipt Date: 20240312
  Transmission Date: 20240410
  Serious: Yes (Hospitalization, Other)
  Sender: FDA-Public Use
  Company Number: IT-MINISAL02-972971

PATIENT
  Age: 64 Year
  Sex: Male

DRUGS (3)
  1. KETOROLAC [Suspect]
     Active Substance: KETOROLAC TROMETHAMINE
     Indication: Abdominal pain
     Dosage: 30 MILLIGRAM
     Route: 042
     Dates: start: 20240207
  2. ACETAMINOPHEN [Suspect]
     Active Substance: ACETAMINOPHEN
     Indication: Abdominal pain
     Dosage: 1000 MILLIGRAM (2 G IN 24 HOURS (1 G ORALLY AT HOME, 1 G PARENTERAL IN THE FIRST INSTANCE)
     Route: 042
     Dates: start: 20240207
  3. ACETAMINOPHEN [Suspect]
     Active Substance: ACETAMINOPHEN
     Indication: Abdominal pain
     Dosage: 2000 MILLIGRAM, ONCE A DAY
     Route: 048
     Dates: start: 20240207

REACTIONS (2)
  - Acute kidney injury [Recovering/Resolving]
  - Pancreatic enzyme abnormality [Recovering/Resolving]

NARRATIVE: CASE EVENT DATE: 20240207
